FAERS Safety Report 19904032 (Version 1)
Quarter: 2021Q4

REPORT INFORMATION
  Report Type: Spontaneous
  Country: IN (occurrence: IN)
  Receive Date: 20211001
  Receipt Date: 20211001
  Transmission Date: 20220304
  Serious: Yes (Hospitalization, Other)
  Sender: FDA-Public Use
  Company Number: IN-STRIDES ARCOLAB LIMITED-2021SP028267

PATIENT
  Sex: Female

DRUGS (4)
  1. TACROLIMUS [Suspect]
     Active Substance: TACROLIMUS
     Indication: Renal transplant
     Dosage: UNK, MAINTENANCE THERAPY
     Route: 065
  2. MYCOPHENOLATE MOFETIL [Suspect]
     Active Substance: MYCOPHENOLATE MOFETIL
     Indication: Renal transplant
     Dosage: UNK, MAINTENANCE THERAPY
     Route: 065
  3. PREDNISOLONE [Suspect]
     Active Substance: PREDNISOLONE
     Indication: Renal transplant
     Dosage: UNK, MAINTENANCE THERAPY
     Route: 065
  4. BASILIXIMAB [Suspect]
     Active Substance: BASILIXIMAB
     Indication: Renal transplant
     Dosage: 20 MILLIGRAM, D0, D4 INDUCTION THERAPY
     Route: 065

REACTIONS (5)
  - Malacoplakia [Recovered/Resolved]
  - Urinary tract infection [Recovered/Resolved]
  - Klebsiella infection [Recovered/Resolved]
  - Escherichia urinary tract infection [Recovered/Resolved]
  - Transplant rejection [Recovered/Resolved]

NARRATIVE: CASE EVENT DATE: 20190101
